FAERS Safety Report 22050710 (Version 1)
Quarter: 2023Q1

REPORT INFORMATION
  Report Type: Spontaneous
  Country: IT (occurrence: None)
  Receive Date: 20230301
  Receipt Date: 20230301
  Transmission Date: 20230418
  Serious: Yes (Hospitalization)
  Sender: FDA-Public Use
  Company Number: 2023A044930

PATIENT
  Age: 76 Year
  Sex: Female

DRUGS (6)
  1. DURVALUMAB [Suspect]
     Active Substance: DURVALUMAB
     Indication: Non-small cell lung cancer
     Dosage: 1ST INFUSION
     Route: 042
  2. DURVALUMAB [Suspect]
     Active Substance: DURVALUMAB
     Indication: Non-small cell lung cancer
     Dosage: 2ND INFUSION
     Route: 042
  3. DURVALUMAB [Suspect]
     Active Substance: DURVALUMAB
     Indication: Non-small cell lung cancer
     Dosage: 3RD INFUSION
     Route: 042
  4. DURVALUMAB [Suspect]
     Active Substance: DURVALUMAB
     Indication: Non-small cell lung cancer
     Dosage: COMPLETED 6 DOSES
     Route: 042
  5. CISPLATIN [Concomitant]
     Active Substance: CISPLATIN
     Indication: Non-small cell lung cancer
     Dosage: 6 CYCLES; 40 MG/MQ ONCE A WEEK
  6. TAXOLO [Concomitant]
     Indication: Non-small cell lung cancer
     Dosage: 6 CYCLES; 30 MG/MQ ONCE A WEEK

REACTIONS (2)
  - Immune-mediated lung disease [Recovering/Resolving]
  - Coronavirus test positive [Recovered/Resolved]
